FAERS Safety Report 5115869-5 (Version None)
Quarter: 2006Q3

REPORT INFORMATION
  Report Type: 
  Country: None (occurrence: None)
  Receive Date: 20060926
  Receipt Date: 20060926
  Transmission Date: 20061208
  Serious: No
  Sender: FDA-Public Use
  Company Number: None

PATIENT
  Sex: Female

DRUGS (1)
  1. ALTEPLASE -TPA (ACTIVASE) [Suspect]
     Dosage: OTO OTO

REACTIONS (4)
  - ARM AMPUTATION [None]
  - DRUG INEFFECTIVE [None]
  - HAEMATOMA [None]
  - HAEMORRHAGE [None]
